FAERS Safety Report 14444090 (Version 1)
Quarter: 2018Q1

REPORT INFORMATION
  Report Type: Spontaneous
  Country: US (occurrence: US)
  Receive Date: 20180125
  Receipt Date: 20180125
  Transmission Date: 20180509
  Serious: Yes (Other)
  Sender: FDA-Public Use
  Company Number: None

PATIENT
  Sex: Male
  Weight: 128.25 kg

DRUGS (4)
  1. CYMBALTA [Concomitant]
     Active Substance: DULOXETINE HYDROCHLORIDE
  2. MEFLOQUINE [Suspect]
     Active Substance: MEFLOQUINE
     Indication: MALARIA
     Route: 048
     Dates: start: 20160725, end: 20160802
  3. IBUPROFEN. [Concomitant]
     Active Substance: IBUPROFEN
  4. AMBIEN [Concomitant]
     Active Substance: ZOLPIDEM TARTRATE

REACTIONS (6)
  - Abnormal dreams [None]
  - Fatigue [None]
  - Hallucination [None]
  - Restlessness [None]
  - Dizziness [None]
  - Insomnia [None]

NARRATIVE: CASE EVENT DATE: 20160726
